FAERS Safety Report 10933065 (Version 1)
Quarter: 2015Q1

REPORT INFORMATION
  Report Type: Spontaneous
  Country: US (occurrence: None)
  Receive Date: 20150319
  Receipt Date: 20150319
  Transmission Date: 20150721
  Serious: No
  Sender: FDA-Public Use
  Company Number: 2015CT000043

PATIENT
  Age: 75 Year
  Sex: Female
  Weight: 72.58 kg

DRUGS (13)
  1. KORLYM [Suspect]
     Active Substance: MIFEPRISTONE
     Indication: CUSHING^S SYNDROME
     Route: 048
     Dates: start: 20141020
  2. METFORMIN [Concomitant]
     Active Substance: METFORMIN HYDROCHLORIDE
  3. VITAMIN B12 [Concomitant]
     Active Substance: CYANOCOBALAMIN
  4. LOSARTAN [Concomitant]
     Active Substance: LOSARTAN
  5. LANTUS [Concomitant]
     Active Substance: INSULIN GLARGINE
  6. ECOTRIN [Concomitant]
     Active Substance: ASPIRIN
  7. GLIPIZIDE. [Concomitant]
     Active Substance: GLIPIZIDE
  8. MONTELUKAST [Concomitant]
     Active Substance: MONTELUKAST SODIUM
  9. VITAMIN D [Concomitant]
     Active Substance: CHOLECALCIFEROL
  10. METHIMAZOLE. [Concomitant]
     Active Substance: METHIMAZOLE
  11. VYTORIN [Concomitant]
     Active Substance: EZETIMIBE\SIMVASTATIN
  12. HUMALOG [Concomitant]
     Active Substance: INSULIN LISPRO
  13. MAGNESIUM [Concomitant]
     Active Substance: MAGNESIUM

REACTIONS (1)
  - Onychomycosis [None]
